FAERS Safety Report 6309099-9 (Version None)
Quarter: 2009Q3

REPORT INFORMATION
  Report Type: 
  Country: None (occurrence: None)
  Receive Date: 20090811
  Receipt Date: 20090730
  Transmission Date: 20100115
  Serious: Yes (Hospitalization, Other)
  Sender: FDA-Public Use
  Company Number: 2009AP003018

PATIENT
  Age: 62 Year
  Sex: Female

DRUGS (4)
  1. METFORMIN HCL [Suspect]
  2. GLICLAZIDE (GLICLAZIDE) [Suspect]
  3. ENALAPRIL MALEATE [Suspect]
  4. ATORVASTATIN CALCIUM [Concomitant]

REACTIONS (15)
  - BLOOD PRESSURE DECREASED [None]
  - BODY TEMPERATURE DECREASED [None]
  - CONTINUOUS HAEMODIAFILTRATION [None]
  - DEHYDRATION [None]
  - DIARRHOEA [None]
  - DRUG LEVEL ABOVE THERAPEUTIC [None]
  - DRUG TOXICITY [None]
  - HAEMODIALYSIS [None]
  - HYPOGLYCAEMIA [None]
  - HYPOPHAGIA [None]
  - METABOLIC ACIDOSIS [None]
  - PALLOR [None]
  - RENAL FAILURE ACUTE [None]
  - RESPIRATORY RATE INCREASED [None]
  - WHITE BLOOD CELL COUNT INCREASED [None]
